FAERS Safety Report 15416435 (Version 1)
Quarter: 2018Q3

REPORT INFORMATION
  Report Type: Spontaneous
  Country: US (occurrence: US)
  Receive Date: 20180924
  Receipt Date: 20180924
  Transmission Date: 20181010
  Serious: Yes (Other)
  Sender: FDA-Public Use
  Company Number: PHHY2018US104435

PATIENT
  Age: 35 Year
  Sex: Female

DRUGS (4)
  1. BACLOFEN SANDOZ [Suspect]
     Active Substance: BACLOFEN
     Indication: DYSTONIA
     Dosage: UNK
     Route: 048
  2. RISPERIDONE. [Suspect]
     Active Substance: RISPERIDONE
     Indication: DYSTONIA
     Route: 048
  3. MORPHINE [Suspect]
     Active Substance: MORPHINE
     Indication: DYSTONIA
     Route: 048
  4. DIAZEPAM. [Suspect]
     Active Substance: DIAZEPAM
     Indication: DYSTONIA
     Route: 048

REACTIONS (1)
  - Therapeutic response decreased [Unknown]
